FAERS Safety Report 16252783 (Version 1)
Quarter: 2019Q2

REPORT INFORMATION
  Report Type: Report from Study
  Country: GB (occurrence: GB)
  Receive Date: 20190429
  Receipt Date: 20190429
  Transmission Date: 20190711
  Serious: Yes (Other)
  Sender: FDA-Public Use
  Company Number: GB-JNJFOC-20190431759

PATIENT
  Age: 57 Year
  Sex: Female

DRUGS (1)
  1. STELARA [Suspect]
     Active Substance: USTEKINUMAB
     Indication: PSORIASIS
     Route: 058
     Dates: start: 20150910

REACTIONS (4)
  - Neoplasm malignant [Recovering/Resolving]
  - Back injury [Unknown]
  - Psoriasis [Unknown]
  - Nerve injury [Unknown]

NARRATIVE: CASE EVENT DATE: 201904
